FAERS Safety Report 9744215 (Version 1)
Quarter: 2013Q4

REPORT INFORMATION
  Report Type: Spontaneous
  Country: US (occurrence: US)
  Receive Date: 20131210
  Receipt Date: 20131210
  Transmission Date: 20140711
  Serious: No
  Sender: FDA-Public Use
  Company Number: US-BIOGENIDEC-2013BI100742

PATIENT
  Age: 44 Year
  Sex: Female

DRUGS (7)
  1. TECFIDERA [Suspect]
     Indication: MULTIPLE SCLEROSIS
     Route: 048
     Dates: start: 20130710
  2. PROMETHAZINE [Concomitant]
  3. NASAL DECONGESTANT [Concomitant]
  4. FLUTICASONE [Concomitant]
  5. FLUZONE [Concomitant]
  6. OXYCODONE [Concomitant]
  7. DIAZEPAM [Concomitant]

REACTIONS (1)
  - Diarrhoea [Recovered/Resolved]
